FAERS Safety Report 8379918-3 (Version None)
Quarter: 2012Q2

REPORT INFORMATION
  Report Type: 
  Country: None (occurrence: None)
  Receive Date: 20120523
  Receipt Date: 20120521
  Transmission Date: 20120825
  Serious: Yes (Hospitalization, Other)
  Sender: FDA-Public Use
  Company Number: DE-PFIZER INC-2011158485

PATIENT
  Age: 48 Year
  Sex: Male
  Weight: 100 kg

DRUGS (2)
  1. SUNITINIB MALATE [Suspect]
     Indication: METASTATIC RENAL CELL CARCINOMA
     Dosage: 50 MG, BIWEEKLY
     Route: 048
     Dates: start: 20101110, end: 20110605
  2. PARACETAMOL [Concomitant]
     Dosage: UNK

REACTIONS (5)
  - JAUNDICE [None]
  - HAEMATEMESIS [None]
  - CHOLESTASIS [None]
  - EROSIVE OESOPHAGITIS [None]
  - ABDOMINAL PAIN UPPER [None]
